FAERS Safety Report 4796873-3 (Version None)
Quarter: 2005Q3

REPORT INFORMATION
  Report Type: 
  Country: None (occurrence: None)
  Receive Date: 20050916
  Receipt Date: 20050126
  Transmission Date: 20060218
  Serious: Yes (Hospitalization)
  Sender: FDA-Public Use
  Company Number: US-JNJFOC-20050107078

PATIENT
  Sex: 0

DRUGS (1)
  1. TOPAMAX [Suspect]

REACTIONS (2)
  - CHILLS [None]
  - PYREXIA [None]
